FAERS Safety Report 7119277-7 (Version None)
Quarter: 2010Q4

REPORT INFORMATION
  Report Type: 
  Country: None (occurrence: None)
  Receive Date: 20101123
  Receipt Date: 20101109
  Transmission Date: 20110411
  Serious: No
  Sender: FDA-Public Use
  Company Number: US-BAYER-201023573BCC

PATIENT
  Sex: Female
  Weight: 50 kg

DRUGS (1)
  1. ALEVE (CAPLET) [Suspect]
     Indication: SELF ESTEEM DECREASED
     Dosage: COUNT BOTTLE 130CT
     Route: 048
     Dates: start: 20101108

REACTIONS (1)
  - VOMITING [None]
